FAERS Safety Report 16105207 (Version 7)
Quarter: 2020Q2

REPORT INFORMATION
  Report Type: Report from Study
  Country: IE (occurrence: IE)
  Receive Date: 20190322
  Receipt Date: 20200429
  Transmission Date: 20200713
  Serious: Yes (Other)
  Sender: FDA-Public Use
  Company Number: PHHY2019IE043952

PATIENT
  Age: 40 Year
  Sex: Female

DRUGS (2)
  1. TAFINLAR [Suspect]
     Active Substance: DABRAFENIB MESYLATE
     Indication: METASTATIC MALIGNANT MELANOMA
     Dosage: 150 MG
     Route: 065
     Dates: start: 20190211
  2. MEKINIST [Suspect]
     Active Substance: TRAMETINIB DIMETHYL SULFOXIDE
     Indication: METASTATIC MALIGNANT MELANOMA
     Dosage: 2 MG, UNK
     Route: 065
     Dates: start: 20190211

REACTIONS (15)
  - Mass [Recovered/Resolved]
  - Abdominal distension [Not Recovered/Not Resolved]
  - Pain in extremity [Recovered/Resolved]
  - Malignant neoplasm progression [Unknown]
  - Nausea [Not Recovered/Not Resolved]
  - Metastases to central nervous system [Unknown]
  - Metastatic malignant melanoma [Unknown]
  - Gait disturbance [Unknown]
  - Sinusitis [Recovering/Resolving]
  - Liver function test increased [Not Recovered/Not Resolved]
  - Somnolence [Recovered/Resolved]
  - Abdominal pain [Recovering/Resolving]
  - Hypertension [Recovering/Resolving]
  - Dyspepsia [Recovered/Resolved]
  - Lymphadenopathy [Recovered/Resolved]

NARRATIVE: CASE EVENT DATE: 20190220
